FAERS Safety Report 18610401 (Version 2)
Quarter: 2020Q4

REPORT INFORMATION
  Report Type: Report from Study
  Country: US (occurrence: US)
  Receive Date: 20201214
  Receipt Date: 20201225
  Transmission Date: 20210114
  Serious: No
  Sender: FDA-Public Use
  Company Number: US-AMGEN-USASP2020199651

PATIENT
  Age: 65 Year
  Sex: Female

DRUGS (3)
  1. REPATHA [Suspect]
     Active Substance: EVOLOCUMAB
     Indication: HYPERLIPIDAEMIA
  2. REPATHA [Suspect]
     Active Substance: EVOLOCUMAB
     Indication: BLOOD CHOLESTEROL INCREASED
     Dosage: 140 MILLIGRAM, Q2WK
     Route: 065
  3. REPATHA [Suspect]
     Active Substance: EVOLOCUMAB
     Indication: BLOOD CHOLESTEROL ABNORMAL

REACTIONS (5)
  - Device difficult to use [Unknown]
  - Injection site pain [Unknown]
  - Wrong technique in product usage process [Unknown]
  - Drug ineffective [Unknown]
  - Product dose omission issue [Unknown]

NARRATIVE: CASE EVENT DATE: 20201106
